FAERS Safety Report 14196314 (Version 2)
Quarter: 2018Q1

REPORT INFORMATION
  Report Type: Report from Study
  Country: US (occurrence: US)
  Receive Date: 20171116
  Receipt Date: 20180108
  Transmission Date: 20180508
  Serious: Yes (Hospitalization)
  Sender: FDA-Public Use
  Company Number: US-JNJFOC-20171013328

PATIENT
  Age: 77 Year
  Sex: Male

DRUGS (17)
  1. TESTOSTERONE. [Concomitant]
     Active Substance: TESTOSTERONE
  2. SILDENAFIL. [Concomitant]
     Active Substance: SILDENAFIL
  3. DRONABINOL. [Concomitant]
     Active Substance: DRONABINOL
  4. IMBRUVICA [Suspect]
     Active Substance: IBRUTINIB
     Indication: CHRONIC LYMPHOCYTIC LEUKAEMIA
     Route: 048
     Dates: start: 20171001, end: 20171013
  5. SERTRALINE [Concomitant]
     Active Substance: SERTRALINE HYDROCHLORIDE
  6. ZOFRAN [Concomitant]
     Active Substance: ONDANSETRON HYDROCHLORIDE
  7. LORAZEPAM. [Concomitant]
     Active Substance: LORAZEPAM
  8. METOPROLOL. [Concomitant]
     Active Substance: METOPROLOL
  9. DOXAZOSIN [Concomitant]
     Active Substance: DOXAZOSIN\DOXAZOSIN MESYLATE
  10. NITROSTAT [Concomitant]
     Active Substance: NITROGLYCERIN
  11. CLONIDINE. [Concomitant]
     Active Substance: CLONIDINE
  12. GLIMEPIRIDE. [Concomitant]
     Active Substance: GLIMEPIRIDE
  13. CARVEDILOL. [Concomitant]
     Active Substance: CARVEDILOL
  14. VALSARTAN. [Concomitant]
     Active Substance: VALSARTAN
  15. ASPIRIN. [Concomitant]
     Active Substance: ASPIRIN
  16. MULTIVITAMINS [Concomitant]
     Active Substance: VITAMINS
  17. HYDRALAZINE [Concomitant]
     Active Substance: HYDRALAZINE HYDROCHLORIDE

REACTIONS (9)
  - Blood pressure increased [Recovering/Resolving]
  - Nausea [Recovering/Resolving]
  - Feeling abnormal [Not Recovered/Not Resolved]
  - Anxiety [Unknown]
  - Malaise [Not Recovered/Not Resolved]
  - Decreased appetite [Recovering/Resolving]
  - Abdominal discomfort [Not Recovered/Not Resolved]
  - Pain [Unknown]
  - Fatigue [Not Recovered/Not Resolved]

NARRATIVE: CASE EVENT DATE: 201710
